FAERS Safety Report 13590577 (Version 7)
Quarter: 2018Q2

REPORT INFORMATION
  Report Type: Report from Study
  Country: CA (occurrence: CA)
  Receive Date: 20170530
  Receipt Date: 20180425
  Transmission Date: 20180711
  Serious: Yes (Other)
  Sender: FDA-Public Use
  Company Number: CA-INCYTE CORPORATION-2017IN004058

PATIENT

DRUGS (13)
  1. JADENU [Suspect]
     Active Substance: DEFERASIROX
     Dosage: 180 MG, QD
     Route: 048
  2. DESFERAL [Suspect]
     Active Substance: DEFEROXAMINE MESYLATE
     Indication: IRON OVERLOAD
     Dosage: 500 MG, QD
     Route: 042
  3. JADENU [Suspect]
     Active Substance: DEFERASIROX
     Indication: IRON OVERLOAD
     Dosage: 90 MG, QD
     Route: 048
  4. WATER PILLS [Concomitant]
     Active Substance: UNSPECIFIED INGREDIENT
     Indication: PRODUCT USED FOR UNKNOWN INDICATION
     Dosage: UNK
     Route: 065
  5. RATIO SILDENAFIL R [Concomitant]
     Indication: PRODUCT USED FOR UNKNOWN INDICATION
     Dosage: UNK
     Route: 065
  6. JAKAVI [Suspect]
     Active Substance: RUXOLITINIB
     Dosage: 15 MG, QD (10 MG QAM AND 5 MG QPM)
     Route: 048
     Dates: start: 201507
  7. PREVACID [Concomitant]
     Active Substance: LANSOPRAZOLE
     Indication: PRODUCT USED FOR UNKNOWN INDICATION
     Dosage: UNK
     Route: 065
  8. JADENU [Suspect]
     Active Substance: DEFERASIROX
     Dosage: 270 MG, QD
     Route: 048
     Dates: start: 201711
  9. EXJADE [Suspect]
     Active Substance: DEFERASIROX
     Indication: IRON OVERLOAD
     Dosage: 500 MG, QD
     Route: 048
     Dates: start: 20151113, end: 201706
  10. RESTORALAX [Concomitant]
     Active Substance: POLYETHYLENE GLYCOL 3350
     Indication: PRODUCT USED FOR UNKNOWN INDICATION
     Dosage: UNK
     Route: 065
  11. JAKAVI [Suspect]
     Active Substance: RUXOLITINIB
     Indication: MYELOFIBROSIS
     Dosage: UNK
     Route: 048
     Dates: start: 20150701
  12. ASPIRIN. [Concomitant]
     Active Substance: ASPIRIN
     Indication: PRODUCT USED FOR UNKNOWN INDICATION
     Dosage: UNK
     Route: 065
  13. METAMUCIL [Concomitant]
     Active Substance: PLANTAGO SEED
     Indication: PRODUCT USED FOR UNKNOWN INDICATION
     Dosage: UNK
     Route: 065

REACTIONS (32)
  - Abdominal discomfort [Unknown]
  - Splenomegaly [Unknown]
  - Eating disorder [Unknown]
  - Full blood count decreased [Unknown]
  - Drug ineffective [Unknown]
  - Off label use [Unknown]
  - Renal impairment [Recovered/Resolved]
  - Feeling abnormal [Unknown]
  - Thinking abnormal [Unknown]
  - Swelling face [Unknown]
  - Constipation [Unknown]
  - Dizziness [Unknown]
  - Discomfort [Unknown]
  - Blood count abnormal [Unknown]
  - Vomiting [Recovered/Resolved]
  - Cystitis [Unknown]
  - Serum ferritin increased [Unknown]
  - Somnolence [Unknown]
  - Infection [Unknown]
  - Blood potassium decreased [Unknown]
  - Diarrhoea [Unknown]
  - Immune system disorder [Unknown]
  - Abdominal pain [Unknown]
  - Haemoglobin decreased [Unknown]
  - Asthenia [Unknown]
  - Speech disorder [Unknown]
  - Dysuria [Unknown]
  - Nausea [Unknown]
  - Pruritus [Unknown]
  - Platelet count decreased [Unknown]
  - Serum ferritin decreased [Unknown]
  - Depression [Unknown]

NARRATIVE: CASE EVENT DATE: 20170516
